FAERS Safety Report 8177995-6 (Version None)
Quarter: 2012Q1

REPORT INFORMATION
  Report Type: 
  Country: None (occurrence: None)
  Receive Date: 20120301
  Receipt Date: 20120222
  Transmission Date: 20120608
  Serious: Yes (Other)
  Sender: FDA-Public Use
  Company Number: CA-BAYER-2011-108928

PATIENT
  Age: 27 Year
  Sex: Female

DRUGS (1)
  1. MIRENA [Suspect]
     Indication: CONTRACEPTION
     Dosage: 20 ?G, CONT
     Route: 015
     Dates: start: 20111109, end: 20111110

REACTIONS (6)
  - POST ABORTION COMPLICATION [None]
  - UTERINE HAEMORRHAGE [None]
  - POST PROCEDURAL HAEMORRHAGE [None]
  - DEVICE DISLOCATION [None]
  - RETAINED PRODUCTS OF CONCEPTION [None]
  - CERVIX DISORDER [None]
